FAERS Safety Report 5264694-3 (Version None)
Quarter: 2007Q1

REPORT INFORMATION
  Report Type: 
  Country: None (occurrence: None)
  Receive Date: 20061117
  Receipt Date: 20051013
  Transmission Date: 20070707
  Serious: Yes (Hospitalization, Other)
  Sender: FDA-Public Use
  Company Number: US-JNJFOC-20050904371

PATIENT
  Age: 62 Year
  Sex: Female
  Weight: 62.5964 kg

DRUGS (11)
  1. LEVAQUIN [Suspect]
     Indication: DRUG USE FOR UNKNOWN INDICATION
     Dosage: ORAL
     Route: 048
     Dates: start: 20050816
  2. NEXIUM [Concomitant]
  3. PLAVIX [Concomitant]
  4. KLONOPIN [Concomitant]
  5. SINGULAIR [Concomitant]
  6. LOTROL (LOTREL) [Concomitant]
  7. ASPIRIN TAB [Concomitant]
  8. MULTI-VITAMINS [Concomitant]
  9. PULMICORT [Concomitant]
  10. XOPENEX [Concomitant]
  11. ^BENSAL^ (ALL OTHER THERAPEUTIC PRODUCTS) [Concomitant]

REACTIONS (1)
  - NEPHRITIS INTERSTITIAL [None]
